FAERS Safety Report 8956245 (Version 2)
Quarter: 2013Q1

REPORT INFORMATION
  Report Type: Spontaneous
  Country: US (occurrence: US)
  Receive Date: 20121210
  Receipt Date: 20130222
  Transmission Date: 20140127
  Serious: Yes (Death)
  Sender: FDA-Public Use
  Company Number: US-BAYER-2012-128646

PATIENT
  Age: 91 Year
  Sex: Female

DRUGS (7)
  1. CIPRO [Suspect]
     Indication: URINARY TRACT INFECTION
     Dosage: 200 MG, BID
     Route: 042
     Dates: start: 20101017, end: 20101024
  2. CIPRO [Suspect]
     Indication: LUNG INFECTION
     Dosage: 200 MG, BID
     Route: 042
     Dates: start: 20101106
  3. LINEZOLID [Concomitant]
  4. VALSARTAN [Concomitant]
  5. HEPARIN [Concomitant]
  6. METOPROLOL [Concomitant]
  7. PANTOPRAZOLE [Concomitant]

REACTIONS (1)
  - Death [Fatal]
